FAERS Safety Report 5333462-6 (Version None)
Quarter: 2007Q2

REPORT INFORMATION
  Report Type: 
  Country: None (occurrence: None)
  Receive Date: 20070521
  Receipt Date: 20070509
  Transmission Date: 20071010
  Serious: Yes (Death)
  Sender: FDA-Public Use
  Company Number: 2007AL001900

PATIENT
  Age: 47 Year
  Sex: Female

DRUGS (16)
  1. SERTRALINE HYDROCHLORIDE [Suspect]
     Indication: DEPRESSION
     Dosage: 100 MG; QD
  2. ATENOLOL [Concomitant]
  3. BENZONATATE [Concomitant]
  4. CLOPIDOGREL [Concomitant]
  5. EPOGEN [Concomitant]
  6. FAMOTIDINE [Concomitant]
  7. FOSINOPRIL SODIUM [Concomitant]
  8. GABAPENTIN [Concomitant]
  9. INSULIN [Concomitant]
  10. NATEGLINIDE [Concomitant]
  11. PIOGLITAZONE [Concomitant]
  12. SIMVASTATIN [Concomitant]
  13. LINEZOLID [Concomitant]
  14. VANCOMYCIN HCL [Concomitant]
  15. CLONAZEPAM [Concomitant]
  16. CALCIUM CHLORIDE [Concomitant]

REACTIONS (17)
  - ANOXIC ENCEPHALOPATHY [None]
  - CARDIO-RESPIRATORY ARREST [None]
  - COMA [None]
  - CONFUSIONAL STATE [None]
  - COORDINATION ABNORMAL [None]
  - DELIRIUM [None]
  - DIARRHOEA [None]
  - DRUG INTERACTION [None]
  - GANGRENE [None]
  - HYPERTENSION [None]
  - INFECTION [None]
  - LEG AMPUTATION [None]
  - MYOCLONUS [None]
  - PERITONEAL DIALYSIS [None]
  - SEROTONIN SYNDROME [None]
  - TACHYCARDIA [None]
  - WOUND NECROSIS [None]
